FAERS Safety Report 15464884 (Version 1)
Quarter: 2018Q4

REPORT INFORMATION
  Report Type: Spontaneous
  Country: IT (occurrence: IT)
  Receive Date: 20181004
  Receipt Date: 20181004
  Transmission Date: 20190204
  Serious: Yes (Other)
  Sender: FDA-Public Use
  Company Number: IT-PFIZER INC-2018400860

PATIENT
  Age: 63 Year
  Sex: Male

DRUGS (7)
  1. METHOTREXATE SODIUM. [Suspect]
     Active Substance: METHOTREXATE SODIUM
     Indication: RHEUMATOID ARTHRITIS
     Dosage: 20 MG, WEEKLY
     Route: 030
     Dates: start: 20171204, end: 20180820
  2. LANSOX [Concomitant]
     Active Substance: LANSOPRAZOLE
     Dosage: UNK
  3. ALENDROS [Concomitant]
     Active Substance: ALENDRONATE SODIUM
     Dosage: UNK
  4. PREDNISONE. [Concomitant]
     Active Substance: PREDNISONE
     Dosage: UNK
  5. CRESTOR [Concomitant]
     Active Substance: ROSUVASTATIN CALCIUM
     Dosage: UNK
  6. COLECALCIFEROL [Concomitant]
     Active Substance: CHOLECALCIFEROL
     Dosage: UNK
  7. FOLINA [FOLIC ACID] [Concomitant]
     Dosage: UNK

REACTIONS (1)
  - Laryngeal cancer [Recovered/Resolved with Sequelae]

NARRATIVE: CASE EVENT DATE: 20180511
